FAERS Safety Report 13347617 (Version 1)
Quarter: 2017Q1

REPORT INFORMATION
  Report Type: Spontaneous
  Country: VE (occurrence: VE)
  Receive Date: 20170317
  Receipt Date: 20170317
  Transmission Date: 20170428
  Serious: Yes (Other)
  Sender: FDA-Public Use
  Company Number: VE-BRISTOL-MYERS SQUIBB COMPANY-BMS-2017-021894

PATIENT
  Sex: Female
  Weight: 56 kg

DRUGS (2)
  1. HYDREA [Suspect]
     Active Substance: HYDROXYUREA
     Indication: PLATELET COUNT INCREASED
     Dosage: 500 MG, QD
     Route: 048
     Dates: end: 201610
  2. GLUCOPHAGE [Concomitant]
     Active Substance: METFORMIN HYDROCHLORIDE
     Indication: DIABETES MELLITUS
     Dosage: 500 MG, UNK
     Route: 065

REACTIONS (2)
  - Product use issue [Unknown]
  - Breast neoplasm [Unknown]
